FAERS Safety Report 7711527 (Version 5)
Quarter: 2016Q1

REPORT INFORMATION
  Report Type: Report from Study
  Country: JP (occurrence: JP)
  Receive Date: 20101215
  Receipt Date: 20160328
  Transmission Date: 20160526
  Serious: Yes (Hospitalization)
  Sender: FDA-Public Use
  Company Number: PHHY2010JP82709

PATIENT
  Sex: Male
  Weight: 53 kg

DRUGS (2)
  1. ICL670A [Suspect]
     Active Substance: DEFERASIROX
     Indication: ACUTE MYELOID LEUKAEMIA
     Dosage: 250 MG, QD (DAILY)
     Route: 048
     Dates: start: 20090605, end: 20090730
  2. DESFERAL [Concomitant]
     Active Substance: DEFEROXAMINE MESYLATE
     Indication: IRON OVERLOAD
     Dosage: 500 MG,
     Route: 030
     Dates: start: 20090422, end: 20090518

REACTIONS (3)
  - Erythema [Not Recovered/Not Resolved]
  - Graft versus host disease [Not Recovered/Not Resolved]
  - Folliculitis [Recovering/Resolving]

NARRATIVE: CASE EVENT DATE: 20090612
